FAERS Safety Report 4704110-0 (Version None)
Quarter: 2005Q2

REPORT INFORMATION
  Report Type: 
  Country: None (occurrence: None)
  Receive Date: 20050629
  Receipt Date: 20020702
  Transmission Date: 20051028
  Serious: No
  Sender: FDA-Public Use
  Company Number: 3884

PATIENT
  Age: 53 Year
  Sex: Female

DRUGS (6)
  1. ACYCLOVIR [Suspect]
     Indication: HERPES SIMPLEX
     Dosage: 400 MG TID PO/ IV
     Route: 042
  2. CAPECITABINE [Concomitant]
  3. DOCETAXEL [Concomitant]
  4. POTASSIUM CHLORIDE [Concomitant]
  5. CALCIUM CARBONATE [Concomitant]
  6. FLUCONAZOLE [Concomitant]

REACTIONS (1)
  - CRYSTALLURIA [None]
